FAERS Safety Report 18904315 (Version 1)
Quarter: 2021Q1

REPORT INFORMATION
  Report Type: Spontaneous
  Country: US (occurrence: US)
  Receive Date: 20210217
  Receipt Date: 20210217
  Transmission Date: 20210420
  Serious: No
  Sender: FDA-Public Use
  Company Number: US-JNJFOC-20210225924

PATIENT
  Sex: Female

DRUGS (14)
  1. MECLIZINE [Concomitant]
     Active Substance: MECLIZINE HYDROCHLORIDE
  2. TORSEMIDE. [Concomitant]
     Active Substance: TORSEMIDE
  3. COREG [Concomitant]
     Active Substance: CARVEDILOL
  4. PEPCID AC [Concomitant]
     Active Substance: FAMOTIDINE
  5. CALCIUM [Concomitant]
     Active Substance: CALCIUM
  6. OCUVITE [ASCORBIC ACID;RETINOL;TOCOPHEROL] [Concomitant]
  7. PREDNISONE. [Concomitant]
     Active Substance: PREDNISONE
  8. HYDROCORTISONE. [Concomitant]
     Active Substance: HYDROCORTISONE
  9. ACETAMINOPHEN. [Concomitant]
     Active Substance: ACETAMINOPHEN
  10. XARELTO [Suspect]
     Active Substance: RIVAROXABAN
     Indication: PULMONARY EMBOLISM
     Route: 048
     Dates: start: 202009
  11. BENADRYL [Concomitant]
     Active Substance: DIPHENHYDRAMINE HYDROCHLORIDE
  12. VITAMIN D [ERGOCALCIFEROL] [Concomitant]
     Active Substance: ERGOCALCIFEROL
  13. KLOR?CON [Concomitant]
     Active Substance: POTASSIUM CHLORIDE
  14. LISINOPRIL. [Concomitant]
     Active Substance: LISINOPRIL

REACTIONS (1)
  - Pruritus [Unknown]
